FAERS Safety Report 16783462 (Version 1)
Quarter: 2019Q3

REPORT INFORMATION
  Report Type: Spontaneous
  Country: GB (occurrence: GB)
  Receive Date: 20190907
  Receipt Date: 20190907
  Transmission Date: 20191005
  Serious: Yes (Hospitalization, Disabling)
  Sender: FDA-Public Use
  Company Number: GB-TEVA-2019-GB-1102570

PATIENT
  Age: 71 Year
  Sex: Female

DRUGS (17)
  1. BISOPROLOL [Concomitant]
     Active Substance: BISOPROLOL
  2. LANSOPRAZOLE. [Concomitant]
     Active Substance: LANSOPRAZOLE
  3. ALOGLIPTIN. [Concomitant]
     Active Substance: ALOGLIPTIN
  4. LOSARTAN. [Concomitant]
     Active Substance: LOSARTAN
  5. CLOPIDOGREL [Concomitant]
     Active Substance: CLOPIDOGREL BISULFATE
  6. ATORVASTATIN [Concomitant]
     Active Substance: ATORVASTATIN
  7. CHLORHEXIDINE [Concomitant]
     Active Substance: CHLORHEXIDINE
  8. EVACAL D3 CHEWABLE [Concomitant]
  9. ISOSORBIDE MONONITRATE. [Concomitant]
     Active Substance: ISOSORBIDE MONONITRATE
  10. AZATHIOPRINE. [Concomitant]
     Active Substance: AZATHIOPRINE
  11. VORICONAZOLE. [Suspect]
     Active Substance: VORICONAZOLE
     Indication: ASPERGILLOMA
     Dosage: 2 WEEK COURSE, 1200MG PER DAY
     Route: 048
     Dates: start: 20190629, end: 20190711
  12. RELVAR ELLIPTA [Concomitant]
     Active Substance: FLUTICASONE FUROATE\VILANTEROL TRIFENATATE
  13. PREDNISOLONE. [Concomitant]
     Active Substance: PREDNISOLONE
  14. METFORMIN [Concomitant]
     Active Substance: METFORMIN HYDROCHLORIDE
  15. LEVOTHYROXINE. [Concomitant]
     Active Substance: LEVOTHYROXINE
  16. ALENDRONIC ACID [Concomitant]
     Active Substance: ALENDRONIC ACID
  17. CYCLIZINE [Concomitant]
     Active Substance: CYCLIZINE

REACTIONS (4)
  - Liver function test abnormal [Recovered/Resolved]
  - Metabolic encephalopathy [Unknown]
  - Communication disorder [Recovering/Resolving]
  - Meningitis fungal [Unknown]

NARRATIVE: CASE EVENT DATE: 20190629
